FAERS Safety Report 8916036 (Version 1)
Quarter: 2012Q4

REPORT INFORMATION
  Report Type: 
  Country: NL (occurrence: NL)
  Receive Date: 20121119
  Receipt Date: 20121119
  Transmission Date: 20130627
  Serious: Yes (Other)
  Sender: FDA-Public Use
  Company Number: NL-TEVA-369153ISR

PATIENT
  Sex: Male
  Weight: 100 kg

DRUGS (7)
  1. METFORMINE [Suspect]
     Route: 048
     Dates: start: 2009
  2. HYDROCHLOROTHIAZIDE [Interacting]
     Route: 048
     Dates: start: 2011
  3. OFLOXACINE [Interacting]
     Route: 048
     Dates: start: 2010
  4. CARBASALATE CALCIUM [Interacting]
     Route: 048
     Dates: start: 2006
  5. ENALAPRIL [Interacting]
     Route: 048
     Dates: start: 2011
  6. OMEPRAZOL [Interacting]
     Route: 048
     Dates: start: 2010
  7. ISOSORBIDE MONONITRATE [Interacting]
     Route: 048
     Dates: start: 2010

REACTIONS (1)
  - Gout [Not Recovered/Not Resolved]
